FAERS Safety Report 19928946 (Version 1)
Quarter: 2021Q4

REPORT INFORMATION
  Report Type: Spontaneous
  Country: US (occurrence: US)
  Receive Date: 20211007
  Receipt Date: 20211007
  Transmission Date: 20220303
  Serious: Yes (Other)
  Sender: FDA-Public Use
  Company Number: US-PFIZER INC-202101301469

PATIENT
  Age: 72 Year
  Sex: Female

DRUGS (2)
  1. RAPAMUNE [Suspect]
     Active Substance: SIROLIMUS
     Indication: Renal transplant
     Dosage: 0.5 MG, 1X/DAY
     Route: 048
  2. PREDNISONE [Concomitant]
     Active Substance: PREDNISONE
     Dosage: UNK

REACTIONS (6)
  - Skin cancer [Unknown]
  - Pericardial effusion [Not Recovered/Not Resolved]
  - Pain [Not Recovered/Not Resolved]
  - Chest pain [Not Recovered/Not Resolved]
  - Contusion [Not Recovered/Not Resolved]
  - Off label use [Unknown]

NARRATIVE: CASE EVENT DATE: 20200101
